FAERS Safety Report 9414378 (Version 7)
Quarter: 2015Q3

REPORT INFORMATION
  Report Type: Spontaneous
  Country: US (occurrence: US)
  Receive Date: 20130723
  Receipt Date: 20150826
  Transmission Date: 20151125
  Serious: Yes (Death, Hospitalization, Other)
  Sender: FDA-Public Use
  Company Number: US-GLAXOSMITHKLINE-A1027731A

PATIENT
  Age: 56 Year
  Sex: Female

DRUGS (8)
  1. FLOLAN [Suspect]
     Active Substance: EPOPROSTENOL SODIUM
     Dosage: UNK
     Dates: start: 20010309
  2. FLOLAN [Suspect]
     Active Substance: EPOPROSTENOL SODIUM
     Dosage: 20.5 NG/KG/MIN, CO
     Route: 042
  3. FLOLAN [Suspect]
     Active Substance: EPOPROSTENOL SODIUM
     Dosage: UNK
     Dates: start: 20010309
  4. FLOLAN [Suspect]
     Active Substance: EPOPROSTENOL SODIUM
     Indication: PULMONARY ARTERIAL HYPERTENSION
     Dosage: 20.5 NG/KG/MIN CONTINUOUSLYCONCENTRATION 30,000 NG/MLVIAL STRENGTH 1.5 MGPUMP RATE 75 ML/DAY
     Route: 042
     Dates: start: 20010309
  5. FLOLAN [Suspect]
     Active Substance: EPOPROSTENOL SODIUM
     Dosage: UNK
     Dates: start: 20010309
  6. FLOLAN [Suspect]
     Active Substance: EPOPROSTENOL SODIUM
     Dosage: 20.5 NG/KG/MIN CONTINUOUS
     Route: 042
  7. FLOLAN [Suspect]
     Active Substance: EPOPROSTENOL SODIUM
     Dosage: UNK
     Dates: start: 20010309
  8. COUMADIN [Concomitant]
     Active Substance: WARFARIN SODIUM

REACTIONS (12)
  - Infusion site erythema [Recovering/Resolving]
  - Central venous catheterisation [Unknown]
  - Eye swelling [Recovering/Resolving]
  - Death [Fatal]
  - Catheter site pain [Unknown]
  - Wound infection [Recovering/Resolving]
  - Catheter site infection [Recovered/Resolved]
  - Device related infection [Unknown]
  - Oral herpes [Recovering/Resolving]
  - Hospitalisation [Recovered/Resolved]
  - Fall [Unknown]
  - Lip swelling [Recovering/Resolving]

NARRATIVE: CASE EVENT DATE: 2013
